FAERS Safety Report 13046374 (Version 1)
Quarter: 2016Q4

REPORT INFORMATION
  Report Type: Spontaneous
  Country: US (occurrence: US)
  Receive Date: 20161220
  Receipt Date: 20161220
  Transmission Date: 20170207
  Serious: Yes (Other)
  Sender: FDA-Public Use
  Company Number: US-PFIZER INC-3240725

PATIENT
  Age: 78 Year
  Sex: Female

DRUGS (2)
  1. MIDAZOLAM [Suspect]
     Active Substance: MIDAZOLAM\MIDAZOLAM HYDROCHLORIDE
     Indication: VASCULAR ACCESS PLACEMENT
     Dosage: 1 MG, ONE DOSE
     Route: 042
     Dates: start: 20160401
  2. FENTANYL CITRATE. [Suspect]
     Active Substance: FENTANYL CITRATE
     Indication: VASCULAR ACCESS PLACEMENT
     Dosage: 50 UG, ONE DOSE
     Route: 042
     Dates: start: 20160401

REACTIONS (1)
  - Sedation [Unknown]

NARRATIVE: CASE EVENT DATE: 20160401
